FAERS Safety Report 9112211 (Version 1)
Quarter: 2013Q1

REPORT INFORMATION
  Report Type: Spontaneous
  Country: US (occurrence: US)
  Receive Date: 20130219
  Receipt Date: 20130219
  Transmission Date: 20140127
  Serious: No
  Sender: FDA-Public Use
  Company Number: US-BRISTOL-MYERS SQUIBB COMPANY-16656720

PATIENT
  Age: 69 Year
  Sex: Male
  Weight: 78.91 kg

DRUGS (3)
  1. ORENCIA [Suspect]
     Indication: RHEUMATOID ARTHRITIS
     Dosage: STARTED THERAPY 2-3 MONTHS AGO,LASTINF23APR2012.
     Route: 042
  2. METHOTREXATE [Concomitant]
     Dosage: 4 PILLS PER WEEK.
  3. FOLIC ACID [Concomitant]

REACTIONS (1)
  - Rash [Not Recovered/Not Resolved]
